FAERS Safety Report 13617538 (Version 2)
Quarter: 2017Q2

REPORT INFORMATION
  Report Type: Spontaneous
  Country: US (occurrence: US)
  Receive Date: 20170606
  Receipt Date: 20170622
  Transmission Date: 20170830
  Serious: Yes (Hospitalization, Other)
  Sender: FDA-Public Use
  Company Number: US-SAOL THERAPEUTICS-2017SAO00558

PATIENT
  Age: 36 Year
  Sex: Female
  Weight: 108.84 kg

DRUGS (4)
  1. BACLOFEN. [Suspect]
     Active Substance: BACLOFEN
     Indication: PAIN
     Route: 037
  2. FENTANYL. [Suspect]
     Active Substance: FENTANYL
     Dosage: 125.2 ?G, \DAY
     Route: 037
  3. DILAUDID [Suspect]
     Active Substance: HYDROMORPHONE HYDROCHLORIDE
     Route: 037
  4. MORPHINE [Suspect]
     Active Substance: MORPHINE
     Route: 037

REACTIONS (12)
  - Hallucination [Recovered/Resolved]
  - Underdose [Unknown]
  - Gait disturbance [Unknown]
  - Device failure [Unknown]
  - Drug ineffective for unapproved indication [Not Recovered/Not Resolved]
  - Implant site infection [Recovered/Resolved]
  - Burning sensation [Unknown]
  - Pain [Unknown]
  - Device occlusion [Unknown]
  - Meningitis [Recovered/Resolved]
  - Wound infection staphylococcal [Recovered/Resolved]
  - Device infusion issue [Unknown]

NARRATIVE: CASE EVENT DATE: 19981021
